FAERS Safety Report 8269768-0 (Version None)
Quarter: 2012Q1

REPORT INFORMATION
  Report Type: 
  Country: None (occurrence: None)
  Receive Date: 20120327
  Receipt Date: 20090827
  Transmission Date: 20120608
  Serious: Yes (Hospitalization)
  Sender: FDA-Public Use
  Company Number: PHEH2009US09996

PATIENT
  Age: 14 Year
  Sex: Female

DRUGS (4)
  1. GLEEVEC [Suspect]
     Indication: CHRONIC MYELOID LEUKAEMIA
     Dosage: 400 MG, QD, ORAL
     Route: 048
  2. ATIVAN [Concomitant]
  3. ZOFRAN [Concomitant]
  4. PRAVACHOL [Concomitant]

REACTIONS (6)
  - NAUSEA [None]
  - VOMITING [None]
  - DYSPEPSIA [None]
  - NIGHTMARE [None]
  - HEADACHE [None]
  - HYPOTENSION [None]
